FAERS Safety Report 15462631 (Version 6)
Quarter: 2019Q3

REPORT INFORMATION
  Report Type: Report from Study
  Country: CA (occurrence: CA)
  Receive Date: 20181004
  Receipt Date: 20190905
  Transmission Date: 20191004
  Serious: Yes (Hospitalization, Other)
  Sender: FDA-Public Use
  Company Number: CA-ROCHE-2193006

PATIENT
  Age: 60 Year
  Sex: Female
  Weight: 122 kg

DRUGS (7)
  1. FLECAINIDE [Concomitant]
     Active Substance: FLECAINIDE
  2. PROPAFENONE. [Concomitant]
     Active Substance: PROPAFENONE
     Indication: PRODUCT USED FOR UNKNOWN INDICATION
  3. RITUXAN [Suspect]
     Active Substance: RITUXIMAB
     Indication: IMMUNE THROMBOCYTOPENIC PURPURA
     Dosage: HOLD
     Route: 042
     Dates: start: 20180921, end: 20180921
  4. DIPHENHYDRAMINE. [Concomitant]
     Active Substance: DIPHENHYDRAMINE
     Indication: PREMEDICATION
     Route: 048
     Dates: start: 20180921
  5. RITUXAN [Suspect]
     Active Substance: RITUXIMAB
     Dosage: HOLD
     Route: 042
     Dates: start: 20190815
  6. ACETAMINOPHEN. [Concomitant]
     Active Substance: ACETAMINOPHEN
     Indication: PREMEDICATION
     Route: 048
     Dates: start: 20180921
  7. BISOPROLOL [Concomitant]
     Active Substance: BISOPROLOL

REACTIONS (11)
  - Oral pain [Recovered/Resolved]
  - Abdominal pain [Not Recovered/Not Resolved]
  - Atrial fibrillation [Unknown]
  - Blood pressure fluctuation [Unknown]
  - Heart rate decreased [Unknown]
  - Chest pain [Not Recovered/Not Resolved]
  - Gait disturbance [Not Recovered/Not Resolved]
  - Arrhythmia [Not Recovered/Not Resolved]
  - Body temperature decreased [Unknown]
  - Off label use [Unknown]
  - Intentional product use issue [Unknown]

NARRATIVE: CASE EVENT DATE: 20180927
